FAERS Safety Report 9127661 (Version 1)
Quarter: 2013Q1

REPORT INFORMATION
  Report Type: Spontaneous
  Country: US (occurrence: US)
  Receive Date: 20130228
  Receipt Date: 20130228
  Transmission Date: 20140127
  Serious: No
  Sender: FDA-Public Use
  Company Number: US-GLAXOSMITHKLINE-A0990439A

PATIENT
  Age: 20 Year
  Sex: Male

DRUGS (2)
  1. LAMICTAL [Suspect]
     Indication: PARTIAL SEIZURES WITH SECONDARY GENERALISATION
     Dosage: 1TAB TWICE PER DAY
     Route: 048
     Dates: start: 2011
  2. KEPPRA [Concomitant]

REACTIONS (2)
  - Gastritis [Not Recovered/Not Resolved]
  - Erosive duodenitis [Unknown]
